FAERS Safety Report 20609053 (Version 1)
Quarter: 2022Q1

REPORT INFORMATION
  Report Type: Spontaneous
  Country: US (occurrence: US)
  Receive Date: 20220317
  Receipt Date: 20220317
  Transmission Date: 20220424
  Serious: No
  Sender: FDA-Public Use
  Company Number: US-SMITH AND NEPHEW, INC-2021SMT00062

PATIENT
  Age: 61 Year
  Sex: Male

DRUGS (2)
  1. COLLAGENASE SANTYL [Suspect]
     Active Substance: COLLAGENASE CLOSTRIDIUM HISTOLYTICUM
  2. DEVICE\HYPOCHLOROUS ACID [Suspect]
     Active Substance: DEVICE\HYPOCHLOROUS ACID
     Indication: Wound treatment

REACTIONS (1)
  - Therapeutic product effect decreased [Unknown]
